FAERS Safety Report 22167337 (Version 1)
Quarter: 2023Q1

REPORT INFORMATION
  Report Type: Spontaneous
  Country: US (occurrence: None)
  Receive Date: 20230331
  Receipt Date: 20230331
  Transmission Date: 20230417
  Serious: Yes (Hospitalization)
  Sender: FDA-Public Use
  Company Number: None

PATIENT
  Sex: Female

DRUGS (3)
  1. ZIEXTENZO [Suspect]
     Active Substance: PEGFILGRASTIM-BMEZ
     Indication: Agranulocytosis
     Dosage: OTHER FREQUENCY : Q 21 DAYS;?
     Route: 058
     Dates: start: 20230227
  2. LISINOPRIL [Suspect]
     Active Substance: LISINOPRIL
  3. HYDROCHLOROTHIAZIDE [Suspect]
     Active Substance: HYDROCHLOROTHIAZIDE

REACTIONS (4)
  - Blood sodium decreased [None]
  - Nausea [None]
  - Diarrhoea [None]
  - Therapy cessation [None]
